FAERS Safety Report 9752815 (Version 1)
Quarter: 2013Q4

REPORT INFORMATION
  Report Type: Spontaneous
  Country: US (occurrence: None)
  Receive Date: 20131212
  Receipt Date: 20131212
  Transmission Date: 20140711
  Serious: Yes (Other)
  Sender: FDA-Public Use
  Company Number: None

PATIENT
  Age: 72 Year
  Sex: Female
  Weight: 62.14 kg

DRUGS (1)
  1. BUTRANS [Suspect]
     Indication: PAIN
     Route: 061
     Dates: start: 20131107, end: 20131211

REACTIONS (5)
  - Application site erythema [None]
  - Product adhesion issue [None]
  - Application site pruritus [None]
  - Application site reaction [None]
  - Application site warmth [None]
